FAERS Safety Report 9906680 (Version 1)
Quarter: 2014Q1

REPORT INFORMATION
  Report Type: Spontaneous
  Country: FR (occurrence: FR)
  Receive Date: 20140218
  Receipt Date: 20140218
  Transmission Date: 20141002
  Serious: Yes (Other)
  Sender: FDA-Public Use
  Company Number: FR-PFIZER INC-2014042578

PATIENT
  Age: 2 Year
  Sex: Female

DRUGS (1)
  1. LYRICA [Suspect]
     Dosage: 300 MG, SINGLE
     Route: 048
     Dates: start: 20140107

REACTIONS (5)
  - Accidental exposure to product by child [Recovered/Resolved]
  - Abnormal behaviour [Recovered/Resolved]
  - Balance disorder [Recovered/Resolved]
  - Somnolence [Recovered/Resolved]
  - Hyperthermia [Recovered/Resolved]
